FAERS Safety Report 7588489-0 (Version None)
Quarter: 2011Q3

REPORT INFORMATION
  Report Type: 
  Country: None (occurrence: None)
  Receive Date: 20110705
  Receipt Date: 20110628
  Transmission Date: 20111222
  Serious: Yes (Life-Threatening)
  Sender: FDA-Public Use
  Company Number: DE-PFIZER INC-2011098441

PATIENT
  Age: 72 Year
  Sex: Female
  Weight: 75 kg

DRUGS (2)
  1. TORISEL [Suspect]
     Indication: METASTATIC RENAL CELL CARCINOMA
     Dosage: 25 MG, SINGLE
     Route: 042
     Dates: start: 20110505, end: 20110505
  2. FENISTIL [Concomitant]
     Indication: PREMEDICATION
     Dosage: 4 MG DILUTED IN 250 ML NACL 0.9% SOULUTION, SINGLE OVER 30 MINUTES
     Route: 042
     Dates: start: 20110505, end: 20110505

REACTIONS (3)
  - ANAPHYLACTIC SHOCK [None]
  - CARDIAC ARREST [None]
  - RESPIRATORY ARREST [None]
